FAERS Safety Report 5835134-8 (Version None)
Quarter: 2008Q3

REPORT INFORMATION
  Report Type: 
  Country: None (occurrence: None)
  Receive Date: 20080805
  Receipt Date: 20080805
  Transmission Date: 20090109
  Serious: No
  Sender: FDA-Public Use
  Company Number: None

PATIENT
  Age: 62 Year
  Sex: Female

DRUGS (1)
  1. CERST HEALTH PRO CARE CREST PRO HEALTH TOOTHPASTE [Suspect]
     Indication: ROUTINE HEALTH MAINTENANCE
     Dosage: 2 X A DAY PO
     Route: 048
     Dates: start: 20080601, end: 20080721

REACTIONS (6)
  - AGEUSIA [None]
  - BURNING SENSATION [None]
  - GLOSSODYNIA [None]
  - HYPOAESTHESIA [None]
  - PHARMACEUTICAL PRODUCT COMPLAINT [None]
  - SKIN EXFOLIATION [None]
